FAERS Safety Report 22020718 (Version 1)
Quarter: 2023Q1

REPORT INFORMATION
  Report Type: Spontaneous
  Country: US (occurrence: US)
  Receive Date: 20230222
  Receipt Date: 20230222
  Transmission Date: 20230418
  Serious: No
  Sender: FDA-Public Use
  Company Number: US-ELI_LILLY_AND_COMPANY-US202302005505

PATIENT
  Sex: Female

DRUGS (1)
  1. FORTEO [Suspect]
     Active Substance: TERIPARATIDE
     Indication: Osteoporosis
     Dosage: UNK, UNKNOWN
     Route: 058
     Dates: start: 20230203

REACTIONS (9)
  - Fatigue [Unknown]
  - Oropharyngeal discomfort [Unknown]
  - Nasopharyngitis [Unknown]
  - Spinal disorder [Unknown]
  - Nervousness [Unknown]
  - Phobia [Unknown]
  - Dizziness [Unknown]
  - Injection site pain [Unknown]
  - Anxiety [Recovered/Resolved]
